FAERS Safety Report 14033827 (Version 5)
Quarter: 2018Q1

REPORT INFORMATION
  Report Type: Spontaneous
  Country: NO (occurrence: NO)
  Receive Date: 20171003
  Receipt Date: 20180327
  Transmission Date: 20180508
  Serious: Yes (Hospitalization)
  Sender: FDA-Public Use
  Company Number: PHHY2017NO140198

PATIENT
  Age: 46 Year
  Sex: Male

DRUGS (1)
  1. SANDOSTATIN LAR DEPOT [Suspect]
     Active Substance: OCTREOTIDE ACETATE
     Indication: CARCINOID TUMOUR
     Dosage: UNK UNK, QMO (EVERY 4TH WEEKS)
     Route: 030

REACTIONS (3)
  - Sepsis [Recovered/Resolved with Sequelae]
  - Needle issue [Unknown]
  - Injection site infection [Recovered/Resolved with Sequelae]

NARRATIVE: CASE EVENT DATE: 20170612
